FAERS Safety Report 16087853 (Version 2)
Quarter: 2019Q4

REPORT INFORMATION
  Report Type: Report from Study
  Country: PH (occurrence: PH)
  Receive Date: 20190319
  Receipt Date: 20191024
  Transmission Date: 20200122
  Serious: Yes (Hospitalization, Disabling, Other)
  Sender: FDA-Public Use
  Company Number: PH-ROCHE-2283374

PATIENT
  Age: 50 Year
  Sex: Female

DRUGS (2)
  1. MABTHERA [Suspect]
     Active Substance: RITUXIMAB
     Dosage: SECOND CYCLE
     Route: 042
  2. MABTHERA [Suspect]
     Active Substance: RITUXIMAB
     Indication: PRODUCT USED FOR UNKNOWN INDICATION
     Dosage: 1 VIAL
     Route: 042
     Dates: start: 20190228

REACTIONS (4)
  - Balance disorder [Recovering/Resolving]
  - Cerebrovascular accident [Recovering/Resolving]
  - Blindness [Recovering/Resolving]
  - Internal haemorrhage [Unknown]

NARRATIVE: CASE EVENT DATE: 20190228
